FAERS Safety Report 15970750 (Version 1)
Quarter: 2019Q1

REPORT INFORMATION
  Report Type: Report from Study
  Country: US (occurrence: US)
  Receive Date: 20190215
  Receipt Date: 20190215
  Transmission Date: 20190418
  Serious: Yes (Other)
  Sender: FDA-Public Use
  Company Number: US-AMAG PHARMACEUTICALS, INC.-AMAG201805069

PATIENT
  Age: 30 Year
  Sex: Female
  Weight: 87.98 kg

DRUGS (2)
  1. RHOGAM ULTRA-FILTERED PLUS [Concomitant]
     Active Substance: HUMAN RHO(D) IMMUNE GLOBULIN
     Indication: PRODUCT USED FOR UNKNOWN INDICATION
     Dosage: 1500 UNITS, UNK
     Route: 030
     Dates: start: 20180625
  2. MAKENA [Suspect]
     Active Substance: HYDROXYPROGESTERONE CAPROATE
     Indication: PREMATURE DELIVERY
     Dosage: 250 MG/ML, WEEKLY
     Route: 058
     Dates: start: 20180809, end: 20180906

REACTIONS (4)
  - Premature delivery [Recovered/Resolved]
  - Back pain [Unknown]
  - Injection site rash [Unknown]
  - Dizziness [Unknown]

NARRATIVE: CASE EVENT DATE: 20180913
